FAERS Safety Report 4468039-8 (Version None)
Quarter: 2004Q4

REPORT INFORMATION
  Report Type: 
  Country: None (occurrence: None)
  Receive Date: 20041004
  Receipt Date: 20041004
  Transmission Date: 20050328
  Serious: Yes (Other)
  Sender: FDA-Public Use
  Company Number: None

PATIENT
  Age: 72 Year
  Sex: Male
  Weight: 133.4 kg

DRUGS (13)
  1. FOSINOPRIL [Suspect]
  2. IRBESARTAN [Concomitant]
  3. ROSIGLITAZONE [Concomitant]
  4. GLIPIZIDE [Concomitant]
  5. PAROXETINE [Concomitant]
  6. SODIUM FLUORIDE 1.1% [Concomitant]
  7. SUGARLESS (GUAIFENESIN/DM) COUGH SYRUP [Concomitant]
  8. ACETAMINOPHEN [Concomitant]
  9. ALBUTEROL SOLN 2.5MG/3ML [Concomitant]
  10. GABAPENTIN [Concomitant]
  11. ATORVASTATIN CALCIUM [Concomitant]
  12. FOSINOPRIL [Concomitant]
  13. OXYBUTYNIN CHLORIDE [Concomitant]

REACTIONS (1)
  - COUGH [None]
